FAERS Safety Report 8189800-2 (Version None)
Quarter: 2012Q1

REPORT INFORMATION
  Report Type: 
  Country: None (occurrence: None)
  Receive Date: 20120307
  Receipt Date: 20110520
  Transmission Date: 20120608
  Serious: No
  Sender: FDA-Public Use
  Company Number: US-GLAXOSMITHKLINE-A0928345A

PATIENT
  Sex: Female

DRUGS (8)
  1. SYMBICORT [Concomitant]
  2. VITAMIN TAB [Concomitant]
  3. REQUIP [Suspect]
     Indication: RESTLESS LEGS SYNDROME
     Dosage: 2.5MG VARIABLE DOSE
     Route: 048
  4. FISH OIL [Concomitant]
  5. ASPIRIN [Concomitant]
  6. FLONASE [Concomitant]
  7. NEXIUM [Concomitant]
  8. NEBULIZER [Concomitant]

REACTIONS (5)
  - DIARRHOEA [None]
  - NAUSEA [None]
  - DRUG INEFFECTIVE [None]
  - DIZZINESS [None]
  - VOMITING [None]
